FAERS Safety Report 7042396-0 (Version None)
Quarter: 2010Q4

REPORT INFORMATION
  Report Type: 
  Country: None (occurrence: None)
  Receive Date: 20101013
  Receipt Date: 20100803
  Transmission Date: 20110411
  Serious: No
  Sender: FDA-Public Use
  Company Number: US-ASTRAZENECA-2010SE29635

PATIENT
  Age: 81 Year
  Sex: Male
  Weight: 89.8 kg

DRUGS (21)
  1. SYMBICORT [Suspect]
     Indication: CHRONIC OBSTRUCTIVE PULMONARY DISEASE
     Dosage: 160/4.5 TWO PUFFS
     Route: 055
  2. CLONIDINE [Concomitant]
  3. FLUOXETINE [Concomitant]
  4. MEMANTINE [Concomitant]
  5. OMEPRAZOLE [Concomitant]
  6. FOLIC ACID [Concomitant]
  7. LEVOTHYROXINE [Concomitant]
  8. ARICEPT [Concomitant]
  9. ATORVASTATIN [Concomitant]
  10. CLONAZEPAM [Concomitant]
  11. LIDODERM [Concomitant]
  12. SPIRIVA [Concomitant]
  13. ALBUTEROL [Concomitant]
  14. O2 [Concomitant]
  15. ASPIRIN [Concomitant]
  16. FISH OIL [Concomitant]
  17. COQ10 [Concomitant]
  18. MIRALAX [Concomitant]
  19. STOOL SOFTENER [Concomitant]
  20. VITAMIN D [Concomitant]
  21. CALCIUM [Concomitant]

REACTIONS (2)
  - DRUG DOSE OMISSION [None]
  - DYSPNOEA [None]
